FAERS Safety Report 5008301-3 (Version None)
Quarter: 2006Q2

REPORT INFORMATION
  Report Type: 
  Country: None (occurrence: None)
  Receive Date: 20060523
  Receipt Date: 20060502
  Transmission Date: 20061013
  Serious: Yes (Other)
  Sender: FDA-Public Use
  Company Number: NO-AMGEN-UK178607

PATIENT
  Sex: Female
  Weight: 56 kg

DRUGS (4)
  1. NEULASTA [Suspect]
     Indication: CHEMOTHERAPY
     Route: 058
     Dates: start: 20060408, end: 20060408
  2. FLUOROURACIL [Concomitant]
     Route: 065
     Dates: start: 20060224
  3. EPIRUBICIN [Concomitant]
     Route: 065
     Dates: start: 20060224
  4. CYCLOPHOSPHAMIDE [Concomitant]
     Route: 065
     Dates: start: 20060224

REACTIONS (9)
  - ABNORMAL SENSATION IN EYE [None]
  - ANAPHYLACTIC REACTION [None]
  - DIZZINESS [None]
  - DYSPNOEA [None]
  - ERYTHEMA [None]
  - HEADACHE [None]
  - HYPOTENSION [None]
  - OEDEMA PERIPHERAL [None]
  - PARAESTHESIA ORAL [None]
